FAERS Safety Report 9637663 (Version 1)
Quarter: 2013Q4

REPORT INFORMATION
  Report Type: Spontaneous
  Country: FR (occurrence: FR)
  Receive Date: 20131022
  Receipt Date: 20131022
  Transmission Date: 20140711
  Serious: Yes (Hospitalization)
  Sender: FDA-Public Use
  Company Number: FR-PFIZER INC-2013295596

PATIENT
  Age: 65 Year
  Sex: Female

DRUGS (3)
  1. ZYVOXID [Suspect]
     Indication: STAPHYLOCOCCAL SEPSIS
     Dosage: UNK
     Dates: start: 20130812, end: 20130812
  2. VANCOMYCINE [Suspect]
     Indication: STAPHYLOCOCCAL SEPSIS
     Dosage: UNK
     Dates: start: 20130811, end: 20130811
  3. AMIKACIN [Suspect]
     Indication: STAPHYLOCOCCAL SEPSIS
     Dosage: UNK
     Dates: start: 20130811, end: 20130811

REACTIONS (1)
  - Posterior reversible encephalopathy syndrome [Unknown]
